FAERS Safety Report 23243710 (Version 2)
Quarter: 2023Q4

REPORT INFORMATION
  Report Type: Report from Study
  Country: DE (occurrence: DE)
  Receive Date: 20231130
  Receipt Date: 20231208
  Transmission Date: 20240110
  Serious: No
  Sender: FDA-Public Use
  Company Number: DE-UCBSA-2023056314

PATIENT
  Sex: Female
  Weight: 76 kg

DRUGS (2)
  1. BIMEKIZUMAB [Suspect]
     Active Substance: BIMEKIZUMAB
     Indication: Psoriasis
     Dosage: 210 MILLIGRAM, EV 4 WEEKS THEN 8 WEEKS
     Dates: start: 20230823
  2. BIMEKIZUMAB [Suspect]
     Active Substance: BIMEKIZUMAB
     Dosage: 210 MILLIGRAM, EV 8 WEEKS
     Dates: start: 2023

REACTIONS (3)
  - Oral candidiasis [Recovered/Resolved]
  - Gingivitis [Recovered/Resolved]
  - Angular cheilitis [Recovering/Resolving]

NARRATIVE: CASE EVENT DATE: 20231103
